FAERS Safety Report 18389483 (Version 1)
Quarter: 2020Q4

REPORT INFORMATION
  Report Type: Spontaneous
  Country: IT (occurrence: IT)
  Receive Date: 20201016
  Receipt Date: 20201016
  Transmission Date: 20210114
  Serious: Yes (Death)
  Sender: FDA-Public Use
  Company Number: IT-GYP-000026

PATIENT
  Age: 66 Year

DRUGS (1)
  1. PREDNISONE. [Suspect]
     Active Substance: PREDNISONE
     Indication: HENOCH-SCHONLEIN PURPURA
     Dosage: 1MG/KG/DAY
     Route: 065

REACTIONS (4)
  - Drug effective for unapproved indication [Unknown]
  - Endocarditis [Fatal]
  - Septic embolus [Fatal]
  - Arterial thrombosis [Fatal]
